FAERS Safety Report 8973893 (Version 1)
Quarter: 2012Q4

REPORT INFORMATION
  Report Type: 
  Country: US (occurrence: US)
  Receive Date: 20121218
  Receipt Date: 20121218
  Transmission Date: 20130627
  Serious: Yes (Death)
  Sender: FDA-Public Use
  Company Number: US-GLAXOSMITHKLINE-A1005728A

PATIENT
  Age: 59 Year
  Sex: Male

DRUGS (2)
  1. TYKERB [Suspect]
     Indication: GASTRIC CANCER
     Dosage: 1250MG Per day
     Route: 048
     Dates: start: 20111230, end: 20121111
  2. ENOXAPARIN [Suspect]
     Indication: DEEP VEIN THROMBOSIS
     Route: 065
     Dates: start: 20121108

REACTIONS (2)
  - Death [Fatal]
  - Off label use [Unknown]
